FAERS Safety Report 8956927 (Version 1)
Quarter: 2012Q4

REPORT INFORMATION
  Report Type: 
  Country: US (occurrence: US)
  Receive Date: 20121210
  Receipt Date: 20121210
  Transmission Date: 20130627
  Serious: No
  Sender: FDA-Public Use
  Company Number: US-ASTRAZENECA-2012SE86638

PATIENT
  Sex: Male

DRUGS (2)
  1. ZESTORETIC [Suspect]
     Indication: HYPERTENSION
     Dosage: 10- 12.5 MG DAILY
     Route: 048
     Dates: start: 2002, end: 201209
  2. ZESTORETIC [Suspect]
     Indication: HYPERTENSION
     Dosage: 20- 25 MG DAILY
     Route: 048
     Dates: start: 201210

REACTIONS (2)
  - Pollakiuria [Not Recovered/Not Resolved]
  - Off label use [Not Recovered/Not Resolved]
